FAERS Safety Report 9802210 (Version 6)
Quarter: 2014Q2

REPORT INFORMATION
  Report Type: Spontaneous
  Country: US (occurrence: US)
  Receive Date: 20140107
  Receipt Date: 20140422
  Transmission Date: 20141212
  Serious: Yes (Other)
  Sender: FDA-Public Use
  Company Number: US-GLAXOSMITHKLINE-A1055647A

PATIENT
  Age: 55 Year
  Sex: Female
  Weight: 70.9 kg

DRUGS (13)
  1. VENTOLIN HFA [Suspect]
     Indication: RESPIRATORY DISORDER
     Route: 055
     Dates: start: 2008
  2. ADVAIR HFA [Suspect]
     Indication: RESPIRATORY DISORDER
     Dosage: 1PUFF TWICE PER DAY
     Route: 055
     Dates: start: 2010
  3. LAMICTAL [Suspect]
     Indication: BIPOLAR DISORDER
     Dosage: 200MG PER DAY
     Route: 048
     Dates: start: 2006
  4. SYMBICORT [Suspect]
     Indication: ASTHMA
     Route: 065
     Dates: start: 2010
  5. PRAVASTATIN [Suspect]
     Indication: PRODUCT USED FOR UNKNOWN INDICATION
     Route: 065
  6. ATENOLOL [Concomitant]
  7. RISPERDAL [Concomitant]
  8. NEXIUM [Concomitant]
  9. OXYCODONE [Concomitant]
  10. NAPROSYN [Concomitant]
  11. ZOLOFT [Concomitant]
  12. KLONOPIN [Concomitant]
  13. NORVASC [Concomitant]

REACTIONS (8)
  - Pneumonia [Not Recovered/Not Resolved]
  - Dyspnoea [Not Recovered/Not Resolved]
  - Bronchitis [Not Recovered/Not Resolved]
  - Asthma [Not Recovered/Not Resolved]
  - Pain [Not Recovered/Not Resolved]
  - Anaemia [Unknown]
  - Influenza like illness [Unknown]
  - Chest pain [Recovered/Resolved]
